FAERS Safety Report 18814663 (Version 1)
Quarter: 2021Q1

REPORT INFORMATION
  Report Type: Spontaneous
  Country: JP (occurrence: JP)
  Receive Date: 20210201
  Receipt Date: 20210201
  Transmission Date: 20210419
  Serious: Yes (Death, Hospitalization, Other)
  Sender: FDA-Public Use
  Company Number: JP-TEVA-2021-JP-000364J

PATIENT
  Age: 84 Year
  Sex: Male

DRUGS (1)
  1. PREDNISOLONE POWDER 1% [Suspect]
     Active Substance: PREDNISOLONE
     Indication: PRODUCT USED FOR UNKNOWN INDICATION
     Route: 065
     Dates: start: 201901, end: 201901

REACTIONS (2)
  - Bronchopulmonary aspergillosis [Fatal]
  - Pneumonia [Fatal]
